FAERS Safety Report 6831505-1 (Version None)
Quarter: 2010Q3

REPORT INFORMATION
  Report Type: 
  Country: None (occurrence: None)
  Receive Date: 20100712
  Receipt Date: 20100628
  Transmission Date: 20110219
  Serious: Yes (Hospitalization, Other)
  Sender: FDA-Public Use
  Company Number: PHHY2010US19787

PATIENT
  Sex: Male
  Weight: 105 kg

DRUGS (1)
  1. EXJADE [Suspect]
     Indication: IRON METABOLISM DISORDER
     Dosage: 500 MG, DAILY
     Route: 048
     Dates: start: 20090227

REACTIONS (3)
  - CARDIAC DISORDER [None]
  - CORONARY ANGIOPLASTY [None]
  - STENT PLACEMENT [None]
